FAERS Safety Report 10204717 (Version 1)
Quarter: 2014Q2

REPORT INFORMATION
  Report Type: Report from Study
  Country: ES (occurrence: ES)
  Receive Date: 20140529
  Receipt Date: 20140529
  Transmission Date: 20141212
  Serious: Yes (Hospitalization)
  Sender: FDA-Public Use
  Company Number: ES-GLAXOSMITHKLINE-B0984107A

PATIENT
  Sex: Female
  Weight: 51.5 kg

DRUGS (5)
  1. PAZOPANIB [Suspect]
     Indication: RENAL CELL CARCINOMA
     Dates: start: 20140218
  2. INTERFERON [Suspect]
     Indication: RENAL CELL CARCINOMA
     Dates: start: 20140218
  3. DOXAZOSINA [Concomitant]
     Indication: HYPERTENSION
     Dosage: 6MG TWICE PER DAY
     Route: 048
     Dates: start: 20140211
  4. LOSARTAN [Concomitant]
     Indication: HYPERTENSION
     Dosage: 100MG TWICE PER DAY
     Route: 048
     Dates: start: 201402
  5. HIDROSALURETIL [Concomitant]
     Indication: HYPERTENSION
     Dosage: 50MG TWICE PER DAY
     Route: 048
     Dates: start: 200906

REACTIONS (1)
  - Transient ischaemic attack [Recovered/Resolved]
